FAERS Safety Report 8401834-9 (Version None)
Quarter: 2012Q2

REPORT INFORMATION
  Report Type: 
  Country: None (occurrence: None)
  Receive Date: 20120601
  Receipt Date: 20120523
  Transmission Date: 20120825
  Serious: Yes (Hospitalization)
  Sender: FDA-Public Use
  Company Number: US-US-EMD SERONO, INC.-7135161

PATIENT
  Sex: Male
  Weight: 98 kg

DRUGS (4)
  1. TEMAZEPAM [Concomitant]
     Indication: INSOMNIA
  2. REBIF [Suspect]
     Indication: MULTIPLE SCLEROSIS
     Route: 058
     Dates: start: 20110528
  3. IBUPROFEN (ADVIL) [Suspect]
     Indication: INFLUENZA LIKE ILLNESS
     Dates: start: 20111201
  4. REBIF [Suspect]
     Route: 058

REACTIONS (4)
  - DYSSTASIA [None]
  - GASTROINTESTINAL ULCER HAEMORRHAGE [None]
  - DRUG HYPERSENSITIVITY [None]
  - GAIT DISTURBANCE [None]
